FAERS Safety Report 17726897 (Version 1)
Quarter: 2020Q2

REPORT INFORMATION
  Report Type: Spontaneous
  Country: US (occurrence: US)
  Receive Date: 20200430
  Receipt Date: 20200430
  Transmission Date: 20200714
  Serious: No
  Sender: FDA-Public Use
  Company Number: US-BRISTOL-MYERS SQUIBB COMPANY-BMS-2020-034832

PATIENT

DRUGS (1)
  1. YERVOY [Suspect]
     Active Substance: IPILIMUMAB
     Indication: PRODUCT USED FOR UNKNOWN INDICATION
     Dosage: 2 VIALS OF IPILIMUMAB 50 MG
     Route: 065

REACTIONS (2)
  - Product storage error [Unknown]
  - Product dose omission [Unknown]

NARRATIVE: CASE EVENT DATE: 20200420
